FAERS Safety Report 17667804 (Version 1)
Quarter: 2020Q2

REPORT INFORMATION
  Report Type: Spontaneous
  Country: IE (occurrence: IE)
  Receive Date: 20200414
  Receipt Date: 20200414
  Transmission Date: 20200713
  Serious: Yes (Hospitalization, Other)
  Sender: FDA-Public Use
  Company Number: IE-BAUSCH-BL-2020-010633

PATIENT
  Age: 36 Year
  Sex: Female

DRUGS (4)
  1. DIAZEPAM (G) [Suspect]
     Active Substance: DIAZEPAM
     Indication: SEDATION
     Route: 042
     Dates: start: 20190926
  2. OVITRELLE [Suspect]
     Active Substance: CHORIOGONADOTROPIN ALFA
     Indication: IN VITRO FERTILISATION
     Route: 065
     Dates: start: 20190924
  3. PETHIDINE (G) [Suspect]
     Active Substance: MEPERIDINE
     Indication: ANALGESIC THERAPY
     Route: 042
     Dates: start: 20190926
  4. SODIUM CHLORIDE (G) [Suspect]
     Active Substance: SODIUM CHLORIDE
     Indication: PRODUCT USED FOR UNKNOWN INDICATION
     Dosage: IV NACL 0.5 PERCENT 250 MLS ADMINISTERED VIA IV VENFLON AND IV GIVING SET AS PER NORMAL PROTOCOL.
     Route: 042
     Dates: start: 20190926

REACTIONS (3)
  - Limb discomfort [Recovered/Resolved]
  - Deep vein thrombosis [Recovered/Resolved]
  - Peripheral swelling [Recovered/Resolved]

NARRATIVE: CASE EVENT DATE: 20190928
